FAERS Safety Report 7018564-0 (Version None)
Quarter: 2010Q3

REPORT INFORMATION
  Report Type: 
  Country: None (occurrence: None)
  Receive Date: 20100924
  Receipt Date: 20100914
  Transmission Date: 20110219
  Serious: Yes (Hospitalization)
  Sender: FDA-Public Use
  Company Number: 1000016365

PATIENT
  Age: 80 Year
  Sex: Female

DRUGS (12)
  1. MEMANTINE HCL [Suspect]
     Indication: DEMENTIA ALZHEIMER'S TYPE
     Dosage: 20 MG (20 MG, 1 IN 1 D)
     Dates: start: 20080101, end: 20100108
  2. EFFEXOR [Suspect]
     Indication: DEPRESSION
     Dosage: 112.5 MG (37.5 MG, 3 IN 1 D), ORAL
     Route: 048
     Dates: start: 20090101, end: 20100108
  3. SPIRONOLACTONE [Concomitant]
  4. INEXIUM (ESOMEPRAZOLE) (ESOMEPRAZOLE) [Concomitant]
  5. LEVOTHYROXINE SODIUM [Concomitant]
  6. LOXAPAC (LOXAPINE) (SOLUTION) (LOXAPINE) [Concomitant]
  7. VITAMIN D3 (COLECALCIFEROL) (COLECALCIFEROL) [Concomitant]
  8. SERETIDE DISKUS (FLUTICASONE, SALMETEROL) (FLUTICASONE, SALMETEROL) [Concomitant]
  9. DIGOXINE (DIGOXIN) (DIGOXIN) [Concomitant]
  10. FUNGIZONE (AMPHOTERICIN B) (POWDER) (AMPHOTERICIN B) [Concomitant]
  11. DOLIPRANE (PARACETAMOL) (TABLETS) (PARACETAMOL) [Concomitant]
  12. ARICEPT (DONEPEZIL) (TABLETS) (DONEPEZIL) [Concomitant]

REACTIONS (4)
  - CHOLELITHIASIS [None]
  - GENERAL PHYSICAL HEALTH DETERIORATION [None]
  - PANCREATITIS ACUTE [None]
  - WHITE BLOOD CELL COUNT INCREASED [None]
